FAERS Safety Report 4783941-5 (Version None)
Quarter: 2005Q3

REPORT INFORMATION
  Report Type: 
  Country: None (occurrence: None)
  Receive Date: 20050928
  Receipt Date: 20050916
  Transmission Date: 20060218
  Serious: No
  Sender: FDA-Public Use
  Company Number: 805#9#2005-00058

PATIENT
  Age: 5 Day
  Sex: Male

DRUGS (17)
  1. ALPROSTADIL [Suspect]
     Indication: HEART DISEASE CONGENITAL
     Dosage: 21.5 NG/KG/MIN, INTRAVENOUS DRIP
     Route: 041
     Dates: start: 20050224, end: 20050613
  2. MENATETRENONE (MENATETRENONE) [Concomitant]
  3. ASCORBIC ACID [Concomitant]
  4. FUROSEMIDE [Concomitant]
  5. AMINOPHYLLIN [Concomitant]
  6. CEFAZOLIN-SODIUM-HYDRATE (CEFAZOLIN) [Concomitant]
  7. PENTAZOCINE LACTATE [Concomitant]
  8. VECURONIUM BROMIDE [Concomitant]
  9. DOPAMINE HCL [Concomitant]
  10. DOBUTAMINE HCL [Concomitant]
  11. SULBACTAM-SODIUM/AMPICILLIN-SODIUM (AMPICILLIN SODIUM, SULBACTAM SODIU [Concomitant]
  12. DEXAMETHASONE-SODIUM-PHOSPHATE (DEXAMETHASONE) [Concomitant]
  13. SPIRONOLACTONE [Concomitant]
  14. DEFPODOXIME-PROXETIL (CEFPODOXIME PROXETIL) [Concomitant]
  15. ASPIRIN [Concomitant]
  16. DIPYRIDAMOLE [Concomitant]
  17. DIGOXIN [Concomitant]

REACTIONS (1)
  - APNOEA [None]
